FAERS Safety Report 22124071 (Version 3)
Quarter: 2024Q2

REPORT INFORMATION
  Report Type: Report from Study
  Country: JP (occurrence: JP)
  Receive Date: 20230322
  Receipt Date: 20240425
  Transmission Date: 20240716
  Serious: Yes (Hospitalization, Other)
  Sender: FDA-Public Use
  Company Number: JP-TAKEDA-2023TJP003602

PATIENT
  Age: 71 Year
  Sex: Male
  Weight: 51.6 kg

DRUGS (10)
  1. LEUPROLIDE ACETATE [Suspect]
     Active Substance: ISOPROPYL ALCOHOL\LEUPROLIDE ACETATE
     Indication: Bulbospinal muscular atrophy congenital
     Route: 058
     Dates: start: 20180125
  2. LOXOPROFEN SODIUM [Concomitant]
     Active Substance: LOXOPROFEN SODIUM
     Indication: Bulbospinal muscular atrophy congenital
     Route: 065
     Dates: start: 20221030
  3. ROZEREM [Concomitant]
     Active Substance: RAMELTEON
     Indication: Product used for unknown indication
     Route: 065
     Dates: start: 20220719
  4. AMINO ACIDS\DEXTROSE\ELECTROLYTES NOS [Concomitant]
     Active Substance: AMINO ACIDS\DEXTROSE\ELECTROLYTES NOS
     Indication: Bulbospinal muscular atrophy congenital
     Route: 065
     Dates: start: 20220811
  5. IRBESARTAN [Concomitant]
     Active Substance: IRBESARTAN
     Indication: Hypertension
     Route: 065
  6. REBAMIPIDE [Concomitant]
     Active Substance: REBAMIPIDE
     Indication: Bulbospinal muscular atrophy congenital
     Route: 065
     Dates: start: 20221030
  7. VIBEGRON [Concomitant]
     Active Substance: VIBEGRON
     Indication: Hypertonic bladder
     Route: 065
     Dates: start: 20220825
  8. DAYVIGO [Concomitant]
     Active Substance: LEMBOREXANT
     Indication: Insomnia
     Route: 065
     Dates: start: 20220719
  9. NORVASC [Concomitant]
     Active Substance: AMLODIPINE BESYLATE
     Indication: Hypertension
     Route: 065
  10. MIYA-BM [Concomitant]
     Active Substance: CLOSTRIDIUM BUTYRICUM SPORES STRAIN M-55
     Indication: Diarrhoea
     Route: 065
     Dates: start: 20221030

REACTIONS (1)
  - Pneumonia aspiration [Recovering/Resolving]

NARRATIVE: CASE EVENT DATE: 20220718
